FAERS Safety Report 10447725 (Version 1)
Quarter: 2014Q3

REPORT INFORMATION
  Report Type: Report from Study
  Country: US (occurrence: US)
  Receive Date: 20140911
  Receipt Date: 20140911
  Transmission Date: 20150326
  Serious: Yes (Hospitalization, Other)
  Sender: FDA-Public Use
  Company Number: US-TEVA-507325USA

PATIENT
  Sex: Female

DRUGS (1)
  1. COPAXONE [Suspect]
     Active Substance: GLATIRAMER ACETATE
     Indication: MULTIPLE SCLEROSIS

REACTIONS (4)
  - Generalised tonic-clonic seizure [Recovered/Resolved]
  - Gait disturbance [Recovered/Resolved]
  - Medical induction of coma [Recovered/Resolved]
  - Bladder catheterisation [Recovered/Resolved]

NARRATIVE: CASE EVENT DATE: 2010
